FAERS Safety Report 4917275-2 (Version None)
Quarter: 2006Q1

REPORT INFORMATION
  Report Type: 
  Country: None (occurrence: None)
  Receive Date: 20060221
  Receipt Date: 20050218
  Transmission Date: 20060701
  Serious: Yes (Hospitalization)
  Sender: FDA-Public Use
  Company Number: US-MERCK-0502USA02870

PATIENT
  Age: 53 Year
  Sex: Male
  Weight: 135 kg

DRUGS (1)
  1. VIOXX [Suspect]
     Indication: OSTEOARTHRITIS
     Route: 048
     Dates: end: 20040909

REACTIONS (2)
  - INJURY [None]
  - MYOCARDIAL INFARCTION [None]
